FAERS Safety Report 8638230 (Version 3)
Quarter: 2012Q4

REPORT INFORMATION
  Report Type: 
  Country: FR (occurrence: FR)
  Receive Date: 20120627
  Receipt Date: 20121026
  Transmission Date: 20130627
  Serious: Yes (Hospitalization, Disabling, Other)
  Sender: FDA-Public Use
  Company Number: PHHY2012FR054050

PATIENT
  Age: 40 Year
  Sex: Female

DRUGS (11)
  1. TEGRETOL [Suspect]
     Indication: SIMPLE PARTIAL SEIZURES
     Dosage: 600 mg, daily
     Route: 048
     Dates: start: 20120411
  2. LOMUSTINE [Interacting]
     Indication: BRAIN NEOPLASM
     Dosage: 160 mg, UNK
     Dates: start: 201109, end: 20120412
  3. VINCRISTINE [Interacting]
     Indication: BRAIN NEOPLASM
     Dosage: 2 mg, UNK
     Dates: start: 201109, end: 20120510
  4. NATULAN [Suspect]
     Indication: BRAIN NEOPLASM
     Dates: start: 201109, end: 20120418
  5. VOGALENE [Concomitant]
     Indication: GASTRITIS
     Dosage: 2 DF, daily
     Dates: start: 20120427
  6. KEPPRA [Concomitant]
     Indication: SIMPLE PARTIAL SEIZURES
     Dosage: 300 mg, daily
  7. KEPPRA [Concomitant]
     Dosage: 3000 mg, daily
     Dates: start: 20120411
  8. KEPPRA [Concomitant]
     Dosage: 2000 mg, daily
     Dates: start: 20120510
  9. NEXIUM [Concomitant]
     Indication: GASTRITIS
     Dosage: 1 DF, daily
     Route: 048
     Dates: start: 20120427
  10. DEMECLOCYCLINE [Concomitant]
  11. CHEMOTHERAPEUTICS [Concomitant]

REACTIONS (6)
  - Drug interaction [Unknown]
  - Oedema peripheral [Recovered/Resolved]
  - Inappropriate antidiuretic hormone secretion [Unknown]
  - Hyponatraemia [Not Recovered/Not Resolved]
  - Skin toxicity [Unknown]
  - Weight decreased [Unknown]
